FAERS Safety Report 17783407 (Version 1)
Quarter: 2020Q2

REPORT INFORMATION
  Report Type: Report from Study
  Country: US (occurrence: US)
  Receive Date: 20200514
  Receipt Date: 20200514
  Transmission Date: 20200714
  Serious: Yes (Other)
  Sender: FDA-Public Use
  Company Number: US-ROCHE-2598637

PATIENT

DRUGS (1)
  1. XELODA [Suspect]
     Active Substance: CAPECITABINE
     Indication: NEOPLASM MALIGNANT
     Dosage: TAKE 3 TABLET(S) BY MOUTH TWICE A DAY FOR 2 WEEKS
     Route: 048

REACTIONS (1)
  - Cerebral disorder [Unknown]
